FAERS Safety Report 14488029 (Version 2)
Quarter: 2018Q3

REPORT INFORMATION
  Report Type: Report from Study
  Country: US (occurrence: US)
  Receive Date: 20180205
  Receipt Date: 20180830
  Transmission Date: 20181010
  Serious: Yes (Death, Other)
  Sender: FDA-Public Use
  Company Number: US-BAYER-2018-022560

PATIENT
  Age: 59 Year
  Sex: Female
  Weight: 79.6 kg

DRUGS (2)
  1. ADEMPAS [Suspect]
     Active Substance: RIOCIGUAT
     Indication: PULMONARY ARTERIAL HYPERTENSION
     Dosage: 1.0 MG, UNK
     Route: 048
     Dates: start: 20180127
  2. ADEMPAS [Suspect]
     Active Substance: RIOCIGUAT
     Indication: PULMONARY ARTERIAL HYPERTENSION
     Dosage: UNK

REACTIONS (5)
  - Cardiac failure chronic [Fatal]
  - Chronic kidney disease [Fatal]
  - Diffuse alveolar damage [Fatal]
  - Pulmonary congestion [Fatal]
  - Sepsis [Fatal]
